FAERS Safety Report 13460908 (Version 1)
Quarter: 2017Q2

REPORT INFORMATION
  Report Type: Report from Study
  Country: CA (occurrence: CA)
  Receive Date: 20170420
  Receipt Date: 20170420
  Transmission Date: 20170830
  Serious: Yes (Hospitalization, Other)
  Sender: FDA-Public Use
  Company Number: CA-ROCHE-1844119

PATIENT
  Age: 57 Year
  Sex: Female

DRUGS (14)
  1. ACTEMRA [Suspect]
     Active Substance: TOCILIZUMAB
     Indication: SCLERITIS
     Dosage: ON 02/FEB/2017 RECEIVED  LAST DOSE
     Route: 042
     Dates: start: 20160922, end: 20170330
  2. VITAMIN C [Concomitant]
     Active Substance: ASCORBIC ACID
  3. TYLENOL EXTRA STRENGTH [Concomitant]
     Active Substance: ACETAMINOPHEN
     Dosage: PRN
     Route: 065
  4. HUMIRA [Concomitant]
     Active Substance: ADALIMUMAB
  5. HYDROCHLOROTHIAZID [Concomitant]
     Active Substance: HYDROCHLOROTHIAZIDE
  6. VALTREX [Concomitant]
     Active Substance: VALACYCLOVIR HYDROCHLORIDE
     Dosage: AS REQUIRED
     Route: 065
  7. PREDNISONE. [Concomitant]
     Active Substance: PREDNISONE
     Route: 065
  8. SYNTHROID [Concomitant]
     Active Substance: LEVOTHYROXINE SODIUM
  9. PREDNISONE. [Concomitant]
     Active Substance: PREDNISONE
     Dosage: INCREASED  DOSE
     Route: 065
  10. TELMISARTAN. [Concomitant]
     Active Substance: TELMISARTAN
  11. SELENIUM [Concomitant]
     Active Substance: SELENIUM
  12. PREVACID [Concomitant]
     Active Substance: LANSOPRAZOLE
  13. FOLIC ACID. [Concomitant]
     Active Substance: FOLIC ACID
  14. BENADRYL [Concomitant]
     Active Substance: DIPHENHYDRAMINE HYDROCHLORIDE
     Dosage: AS REQUIRED
     Route: 065

REACTIONS (12)
  - Inflammation [Unknown]
  - Drug ineffective [Unknown]
  - Eye disorder [Recovered/Resolved]
  - Oxygen saturation decreased [Unknown]
  - Viral upper respiratory tract infection [Not Recovered/Not Resolved]
  - Pain [Unknown]
  - Skin ulcer [Recovering/Resolving]
  - Osteomyelitis [Recovering/Resolving]
  - Oral herpes [Recovered/Resolved]
  - Eye inflammation [Unknown]
  - Anaemia [Unknown]
  - Eye disorder [Unknown]

NARRATIVE: CASE EVENT DATE: 20161018
